FAERS Safety Report 12394910 (Version 3)
Quarter: 2016Q2

REPORT INFORMATION
  Report Type: Report from Study
  Country: GB (occurrence: GB)
  Receive Date: 20160523
  Receipt Date: 20160620
  Transmission Date: 20160815
  Serious: Yes (Other)
  Sender: FDA-Public Use
  Company Number: GB-JNJFOC-20160518097

PATIENT
  Age: 85 Year
  Sex: Male

DRUGS (49)
  1. RAMIPRIL. [Concomitant]
     Active Substance: RAMIPRIL
     Dosage: ONE TO BE TAKEN EACH DAY 28 CAPSULE ISSUED ON 16-MAY-2016
     Route: 065
  2. PREDNISOLONE. [Concomitant]
     Active Substance: PREDNISOLONE
     Dosage: AS REQUIRED 3(28) TABLETS  ISSUED ON 02-JAN-2008
     Route: 065
  3. PREDNISOLONE. [Concomitant]
     Active Substance: PREDNISOLONE
     Dosage: ONE TO BE TAKEN DAILY 56 TABLETS ISSUED ON 10-JUN-2008
     Route: 065
  4. PREDNISOLONE. [Concomitant]
     Active Substance: PREDNISOLONE
     Dosage: GASTRO RESISTANT TABLETS ONCE IN ALTERNATE DAYS 28 TABLETS ISSUED ON 01-MAR-2006
     Route: 065
  5. ALENDRONIC ACID [Concomitant]
     Active Substance: ALENDRONIC ACID
     Dosage: ONE WEEKLY 4 TABLETS ISSUED ON 20-OCT-2016.
     Route: 065
  6. AMOXICILLIN. [Concomitant]
     Active Substance: AMOXICILLIN
     Dosage: ONE TO BE TAKEN THREE TIMES A DAY 21 CAPSULE 07-MAY-2013
     Route: 065
  7. AMLODIPINE [Concomitant]
     Active Substance: AMLODIPINE BESYLATE
     Dosage: ONE TO BE TAKEN DAILY 28 TABLETS ISSUED ON 01-SEP-2014
     Route: 065
  8. CALCIPOTRIOL [Concomitant]
     Active Substance: CALCIPOTRIENE
     Dosage: APPLY AS REQUIRED 120 GRAMS ISSUED ON 08-NOV-2011
     Route: 065
  9. STELARA [Suspect]
     Active Substance: USTEKINUMAB
     Indication: PSORIASIS
     Dosage: 13TH INFUSION
     Route: 058
     Dates: start: 20160517
  10. CINNARIZINE [Concomitant]
     Active Substance: CINNARIZINE
     Dosage: ONE TO BE TAKEN THREE TIMES (42 TABLETS) ISSUED ON 11-SEP-2014
     Route: 065
  11. RAMIPRIL. [Concomitant]
     Active Substance: RAMIPRIL
     Dosage: ONE TO BR TAKEN DAILY 28 CAPSULES 24-NOV-2011.
     Route: 065
  12. RAMIPRIL. [Concomitant]
     Active Substance: RAMIPRIL
     Dosage: OM 28 CAPSULES17-JUN-2015
     Route: 065
  13. DERMOL [Concomitant]
     Active Substance: BENZALKONIUM CHLORIDE\CHLORHEXIDINE HYDROCHLORIDE\ISOPROPYL MYRISTATE\PARAFFIN
     Dosage: APPLY TO SKIN OR USE AS A SOAP SUBSTITUTE 250ML ISSUED ON 16-MAY-2016
     Route: 065
  14. PREDNISOLONE. [Concomitant]
     Active Substance: PREDNISOLONE
     Dosage: AS REQUIRED 100 TABLETS ISSUED ON 20-OCT-2006
     Route: 065
  15. PREDNISOLONE. [Concomitant]
     Active Substance: PREDNISOLONE
     Dosage: AS REQUIRED 7(28) TABLETS ISSUED ON 20-APR-2007
     Route: 065
  16. PREDNISOLONE. [Concomitant]
     Active Substance: PREDNISOLONE
     Dosage: AS REQUIRED 3(28) TABLETS ISSUED ON4-JUL-2007
     Route: 065
  17. PREDNISOLONE. [Concomitant]
     Active Substance: PREDNISOLONE
     Dosage: ONE TO BE TAKEN DAILY 2(28) TABLETS ISSUED ON 24-SEP-2008
     Route: 065
  18. CALCIPOTRIOL [Concomitant]
     Active Substance: CALCIPOTRIENE
     Dosage: APPLY TWICE A DAY 120 GRAM ISSUED ON 06-NOV-2013
     Route: 065
  19. FUROSEMIDE. [Concomitant]
     Active Substance: FUROSEMIDE
     Dosage: OM 28 TABLET ISSUED ON 18-MAY-2016
     Route: 065
  20. SIMVASTATIN. [Concomitant]
     Active Substance: SIMVASTATIN
     Dosage: ONE TO BE TAKEN AT NIGHT (28 TABLETS) ISSUED ON 16-MAY-2016
     Route: 065
  21. PREDNISOLONE. [Concomitant]
     Active Substance: PREDNISOLONE
     Dosage: ONE TO BE TAKEN DAILY 2(28) TABLETS ISSUED ON 04-DEC-2012
     Route: 065
  22. PREDNISOLONE. [Concomitant]
     Active Substance: PREDNISOLONE
     Dosage: AS REQUIRED 5(28) TABLETS ISSUED ON 24-SEP-2008
     Route: 065
  23. PREDNISOLONE. [Concomitant]
     Active Substance: PREDNISOLONE
     Dosage: REDUCING COURSE 63 TABLET 18-JAN-2013
     Route: 065
  24. STELARA [Suspect]
     Active Substance: USTEKINUMAB
     Indication: PSORIASIS
     Route: 058
     Dates: start: 20131003
  25. PREDNISOLONE. [Concomitant]
     Active Substance: PREDNISOLONE
     Dosage: ONE TO BE TAKEN DAILY 112 TABLETS 13-FEB-2009
     Route: 065
  26. PREDNISOLONE. [Concomitant]
     Active Substance: PREDNISOLONE
     Dosage: ONE TO BE TAKEN DAILY 2(28) AS REQUIRED ISSUED ON 07-NOV-2008
     Route: 065
  27. ADCAL D3 [Concomitant]
     Active Substance: CALCIUM CARBONATE\CHOLECALCIFEROL
     Dosage: TWO CHEWABLE TABLETS PER DAY, TUTTI FRUITY FLAVOUR 56 TABLETS ISSUED ON 16-MAY-2016
     Route: 065
  28. AMOXICILLIN. [Concomitant]
     Active Substance: AMOXICILLIN
     Dosage: ONE TO BE TAKEN THREE TIMES A DAY 21 CAPSULE 04-MAY-2016.
     Route: 065
  29. PREDNISOLONE. [Concomitant]
     Active Substance: PREDNISOLONE
     Dosage: AS REQUIRED 56 TABLETS, ISSUED ON 01-DEC-2009
     Route: 065
  30. ADCAL D3 [Concomitant]
     Active Substance: CALCIUM CARBONATE\CHOLECALCIFEROL
     Dosage: LEMON CHEWABLE TABLETS ONE TO BE TAKEN DAILY 56 TABLETS ISSUED ON 06-NOV-2012
     Route: 065
  31. SIMVASTATIN. [Concomitant]
     Active Substance: SIMVASTATIN
     Dosage: ONE TO BE TAKEN DAILY (28 TABLETS) ISSUED ON 22-APR-2005
     Route: 065
  32. PREDNISOLONE. [Concomitant]
     Active Substance: PREDNISOLONE
     Dosage: 4 A DAY FOR 1 WEEK/2 A DAY FOR 1 WEEK/3 A DAY FOR 1 WEEK 84 TABLETS ISSUED ON 02-MAY-2008
     Route: 065
  33. PREDNISOLONE. [Concomitant]
     Active Substance: PREDNISOLONE
     Dosage: AS REQUIRED 5(28) ISSUEDE ON 07-NOV-2008
     Route: 065
  34. PREDNISOLONE. [Concomitant]
     Active Substance: PREDNISOLONE
     Dosage: AS REQUIRED 7(28) TABLETS ISSUED ON 28-FEB-2007
     Route: 065
  35. OMEPRAZOLE. [Concomitant]
     Active Substance: OMEPRAZOLE
     Dosage: ONCE DAILY 28 CAPSULE ISSUED ON 16-MAY-2016
     Route: 065
  36. CALCIPOTRIOL [Concomitant]
     Active Substance: CALCIPOTRIENE
     Dosage: APPLY TWICE A DAY 120 GRAMS ISSUED ON 23-DEC-2016
     Route: 065
  37. RAMIPRIL. [Concomitant]
     Active Substance: RAMIPRIL
     Dosage: OM 28 CAPSULE 14-AUG-2012
     Route: 065
  38. UREA. [Concomitant]
     Active Substance: UREA
     Dosage: 250 ML ISSUED ON 16-MAY-2016
     Route: 065
  39. PREDNISOLONE. [Concomitant]
     Active Substance: PREDNISOLONE
     Dosage: ONE TO BE TAKEN DAILY 28 TABLET 16-MAY-2016.
     Route: 065
  40. PREDNISOLONE. [Concomitant]
     Active Substance: PREDNISOLONE
     Dosage: ONE TO BE TAKEN DAILY 29 TABLETS ISSUED ON 04-NOV-2009
     Route: 065
  41. ALENDRONIC ACID [Concomitant]
     Active Substance: ALENDRONIC ACID
     Dosage: ONE WEEKLY 4 TABLETS ISSUED ON 16-MAY-2016
     Route: 065
  42. AMOXICILLIN. [Concomitant]
     Active Substance: AMOXICILLIN
     Dosage: ONE TO BE TAKEN THREE TIMES A DAY21 CAPSULES ISSUED ON 17-FEB-2015
     Route: 065
  43. CALCIPOTRIOL [Concomitant]
     Active Substance: CALCIPOTRIENE
     Dosage: AS REQUIRED 120 GRAMS
     Route: 065
  44. FUSIDIC ACID [Concomitant]
     Active Substance: FUSIDIC ACID
     Dosage: TWICE DAILY 15 GRAMS ISSUED ON 13-AUG-2013
     Route: 065
  45. FUSIDIC ACID [Concomitant]
     Active Substance: FUSIDIC ACID
     Dosage: APPLY THREE TIMES A DAY 15 GRAMS ISSUED ON 01-JUL-2014
     Route: 065
  46. PREDNISOLONE. [Concomitant]
     Active Substance: PREDNISOLONE
     Dosage: AS REQUIRED 100 TABLETS 09-OCT-2009
     Route: 065
  47. OMEPRAZOLE. [Concomitant]
     Active Substance: OMEPRAZOLE
     Dosage: ONCE A DAY 28 CAPSULE ISSUED ON 04-JUL-2007
     Route: 065
  48. AMLODIPINE [Concomitant]
     Active Substance: AMLODIPINE BESYLATE
     Dosage: ONE TO BE TAKEN EACH DAY 21 CAPSULE ISSUED ON 23-APR-2015
     Route: 065
  49. CLOBETASONE [Concomitant]
     Active Substance: CLOBETASONE
     Dosage: APPLY THINLY ONCE OR TWICE A DAY  30 GRAM ISSUED ON 23-DEC-2013
     Route: 065

REACTIONS (2)
  - Herpes zoster [Recovered/Resolved]
  - Psoriasis [Unknown]

NARRATIVE: CASE EVENT DATE: 20160504
